FAERS Safety Report 10153685 (Version 1)
Quarter: 2014Q2

REPORT INFORMATION
  Report Type: Spontaneous
  Country: AL (occurrence: AL)
  Receive Date: 20140506
  Receipt Date: 20140506
  Transmission Date: 20141212
  Serious: Yes (Death, Hospitalization)
  Sender: FDA-Public Use
  Company Number: AL-INDICUS PHARMA-000250

PATIENT
  Age: 42 Year
  Sex: Female

DRUGS (2)
  1. METFORMIN [Suspect]
     Indication: TYPE 2 DIABETES MELLITUS
     Dosage: HIGH DOSE
  2. BISOPROLOL [Concomitant]
     Indication: HYPERTENSION

REACTIONS (2)
  - Lactic acidosis [Not Recovered/Not Resolved]
  - Multi-organ failure [Fatal]
